FAERS Safety Report 4961605-2 (Version None)
Quarter: 2006Q1

REPORT INFORMATION
  Report Type: 
  Country: None (occurrence: None)
  Receive Date: 20060329
  Receipt Date: 20060314
  Transmission Date: 20060701
  Serious: Yes (Hospitalization)
  Sender: FDA-Public Use
  Company Number: S06-FRA-01255-01

PATIENT
  Age: 75 Year
  Sex: Female

DRUGS (8)
  1. MEMANTINE HCL [Suspect]
     Indication: DEMENTIA ALZHEIMER'S TYPE
     Dosage: 10 MG QD PO
     Route: 048
     Dates: end: 20060215
  2. MEMANTINE HCL [Suspect]
     Indication: DEMENTIA ALZHEIMER'S TYPE
     Dosage: 5 MG QD PO
     Route: 048
     Dates: start: 20060126
  3. MEMANTINE HCL [Suspect]
     Indication: DEMENTIA ALZHEIMER'S TYPE
     Dosage: UNK
     Route: 065
     Dates: start: 20040101
  4. REMINYL               (GALANTAMINE HYDROBROMIDE) [Concomitant]
  5. VASTAREL [Concomitant]
  6. QUINAPRIL HYDROCHLORIDE AND HYDROCHLOROTHIAZDE [Concomitant]
  7. FLECAINIDE ACETATE [Concomitant]
  8. BUFLOMEDIL [Concomitant]

REACTIONS (5)
  - COORDINATION ABNORMAL [None]
  - ENCEPHALOPATHY [None]
  - MYOCLONUS [None]
  - PERFORMANCE STATUS DECREASED [None]
  - TREMOR [None]
